FAERS Safety Report 4733361-4 (Version None)
Quarter: 2005Q3

REPORT INFORMATION
  Report Type: 
  Country: None (occurrence: None)
  Receive Date: 20050801
  Receipt Date: 20050801
  Transmission Date: 20060218
  Serious: Yes (Hospitalization)
  Sender: FDA-Public Use
  Company Number: None

PATIENT
  Age: 48 Year
  Sex: Male

DRUGS (5)
  1. RIBAVIRIN [Suspect]
     Indication: HEPATITIS C
     Dosage: 200 MG 5X DAILY
     Dates: start: 20040507
  2. INTERFERON [Suspect]
     Indication: HEPATITIS C
     Dosage: 120 MG Q WEEK
     Dates: start: 20040408
  3. EPOGTIN [Concomitant]
  4. FILGRASTIN [Concomitant]
  5. CITALOPRAM [Concomitant]

REACTIONS (1)
  - PANCYTOPENIA [None]
